FAERS Safety Report 6579849-5 (Version None)
Quarter: 2010Q1

REPORT INFORMATION
  Report Type: 
  Country: None (occurrence: None)
  Receive Date: 20100209
  Receipt Date: 20100209
  Transmission Date: 20100710
  Serious: Yes (Hospitalization)
  Sender: FDA-Public Use
  Company Number: None

PATIENT
  Age: 67 Year
  Sex: Male

DRUGS (2)
  1. AMBIEN [Suspect]
     Indication: INSOMNIA
     Dosage: PO
     Route: 048
     Dates: start: 20090715, end: 20090715
  2. XANAX [Suspect]
     Indication: ANXIETY
     Dosage: PRN PO
     Route: 048
     Dates: start: 20090715, end: 20090715

REACTIONS (4)
  - ANXIETY [None]
  - HEMIPARESIS [None]
  - INSOMNIA [None]
  - OXYGEN SATURATION DECREASED [None]
